FAERS Safety Report 9732941 (Version 2)
Quarter: 2014Q1

REPORT INFORMATION
  Report Type: Spontaneous
  Country: US (occurrence: US)
  Receive Date: 20131204
  Receipt Date: 20140224
  Transmission Date: 20141002
  Serious: Yes (Hospitalization, Other)
  Sender: FDA-Public Use
  Company Number: US-GILEAD-2013-0088883

PATIENT
  Sex: Female

DRUGS (6)
  1. RANEXA [Suspect]
     Indication: PRODUCT USED FOR UNKNOWN INDICATION
     Dosage: UNK
     Route: 065
     Dates: start: 201309
  2. COREG CR [Suspect]
     Indication: CARDIAC VALVE DISEASE
     Dosage: 40 MG, QD
     Route: 048
     Dates: start: 2008
  3. COREG CR [Suspect]
     Indication: CARDIOVASCULAR EVENT PROPHYLAXIS
  4. COREG [Suspect]
     Indication: CARDIAC VALVE DISEASE
     Dosage: UNK
     Route: 065
     Dates: end: 2008
  5. IMDUR [Suspect]
     Indication: PRODUCT USED FOR UNKNOWN INDICATION
     Dosage: UNK
     Route: 065
     Dates: start: 201309
  6. LIPITOR [Concomitant]

REACTIONS (4)
  - Angina pectoris [Unknown]
  - Off label use [Unknown]
  - Dizziness [Unknown]
  - Headache [Unknown]
